FAERS Safety Report 9850308 (Version 1)
Quarter: 2014Q1

REPORT INFORMATION
  Report Type: Spontaneous
  Country: BE (occurrence: BE)
  Receive Date: 20140128
  Receipt Date: 20140128
  Transmission Date: 20141002
  Serious: Yes (Death, Hospitalization, Other)
  Sender: FDA-Public Use
  Company Number: BE-ABBVIE-14P-013-1194979-00

PATIENT
  Age: 67 Year
  Sex: Male

DRUGS (6)
  1. LOPINAVIR/RITONAVIR [Suspect]
     Indication: HIV INFECTION
  2. LOPINAVIR/RITONAVIR [Suspect]
  3. EMTRICITABINE W/TENOFOVIR [Suspect]
     Indication: HIV INFECTION
  4. ABACAVIR W/LAMIVUDINE [Suspect]
     Indication: HIV INFECTION
  5. ETHAMBUTOL [Concomitant]
     Indication: MYCOBACTERIUM AVIUM COMPLEX INFECTION
  6. CLARITROMYCINE [Concomitant]
     Indication: MYCOBACTERIUM AVIUM COMPLEX INFECTION

REACTIONS (5)
  - Immune reconstitution inflammatory syndrome [Fatal]
  - Lung infection [Fatal]
  - Multi-organ failure [Fatal]
  - Renal failure acute [Recovered/Resolved]
  - Pericardial effusion [Unknown]
